FAERS Safety Report 22263846 (Version 1)
Quarter: 2023Q2

REPORT INFORMATION
  Report Type: Other
  Country: GB (occurrence: GB)
  Receive Date: 20230428
  Receipt Date: 20230428
  Transmission Date: 20230721
  Serious: Yes (Disabling, Other)
  Sender: FDA-Public Use
  Company Number: GB-MACLEODS PHARMA EU LTD-MAC2023040953

PATIENT

DRUGS (1)
  1. ESCITALOPRAM [Suspect]
     Active Substance: ESCITALOPRAM OXALATE
     Indication: Depression
     Dosage: 15 MILLIGRAM
     Route: 065

REACTIONS (3)
  - Back pain [Not Recovered/Not Resolved]
  - Testicular pain [Unknown]
  - Myalgia [Unknown]

NARRATIVE: CASE EVENT DATE: 20220401
